FAERS Safety Report 17458227 (Version 1)
Quarter: 2020Q1

REPORT INFORMATION
  Report Type: Spontaneous
  Country: US (occurrence: US)
  Receive Date: 20200225
  Receipt Date: 20200225
  Transmission Date: 20200409
  Serious: Yes (Other)
  Sender: FDA-Public Use
  Company Number: US-TEVA-2020-US-1190224

PATIENT
  Age: 30 Year
  Sex: Female

DRUGS (1)
  1. BUPRENORPHINE/NALOXONE [Suspect]
     Active Substance: BUPRENORPHINE\NALOXONE
     Indication: DRUG ABUSE
     Dosage: SC INJECTION OF CRUSHED BUPRENORPHINE/NALOXONE TABLETS CONTAINING CROSPOVIDONE
     Route: 058

REACTIONS (4)
  - Eschar [Unknown]
  - Drug abuse [Unknown]
  - Skin necrosis [Unknown]
  - Foreign body reaction [Unknown]
